FAERS Safety Report 6844336-3 (Version None)
Quarter: 2010Q3

REPORT INFORMATION
  Report Type: 
  Country: None (occurrence: None)
  Receive Date: 20100715
  Receipt Date: 20100706
  Transmission Date: 20110219
  Serious: Yes (Other)
  Sender: FDA-Public Use
  Company Number: US-PFIZER INC-2010070738

PATIENT
  Sex: Female
  Weight: 67.12 kg

DRUGS (14)
  1. GEODON [Suspect]
     Indication: MOOD SWINGS
     Dosage: 20 MG DAILY
     Route: 048
     Dates: start: 20050801
  2. GEODON [Suspect]
     Dosage: 40 MG, 2X/DAY
  3. GEODON [Suspect]
     Dosage: 100 MG, UNK
  4. GEODON [Suspect]
     Dosage: 60 MG, UNK
  5. GEODON [Suspect]
     Dosage: 40 MG, UNK
  6. GEODON [Suspect]
     Dosage: 80 MG, 3X/DAY
  7. ZOLOFT [Suspect]
     Indication: DEPRESSION
     Dosage: UNK
  8. EFFEXOR [Suspect]
     Indication: DEPRESSION
     Dosage: 75 MG, DAILY
     Route: 048
     Dates: start: 19960101
  9. LITHIUM [Suspect]
     Indication: MOOD SWINGS
     Dosage: UNK
  10. KLONOPIN [Suspect]
     Indication: ANXIETY
     Dosage: UNK
     Dates: start: 19840101
  11. KLONOPIN [Suspect]
     Dosage: 1 MG, 2X/DAY
  12. LEXAPRO [Suspect]
     Indication: DEPRESSION
     Dosage: UNK
  13. SEROQUEL [Suspect]
     Dosage: 100 MG AT BEDTIME
  14. PAXIL [Suspect]
     Indication: DEPRESSION
     Dosage: UNK

REACTIONS (6)
  - ATTENTION DEFICIT/HYPERACTIVITY DISORDER [None]
  - BIPOLAR DISORDER [None]
  - BLOOD PRESSURE DECREASED [None]
  - BLOOD PRESSURE FLUCTUATION [None]
  - MAJOR DEPRESSION [None]
  - PERSONALITY DISORDER [None]
